FAERS Safety Report 18109523 (Version 1)
Quarter: 2020Q3

REPORT INFORMATION
  Report Type: Spontaneous
  Country: CN (occurrence: CN)
  Receive Date: 20200804
  Receipt Date: 20200804
  Transmission Date: 20201103
  Serious: Yes (Other)
  Sender: FDA-Public Use
  Company Number: CN-ASTRAZENECA-2020SE96329

PATIENT
  Age: 17892 Day
  Sex: Female
  Weight: 57.5 kg

DRUGS (2)
  1. GEFITINIB. [Suspect]
     Active Substance: GEFITINIB
     Indication: NEOPLASM MALIGNANT
     Route: 048
     Dates: start: 20200320, end: 20200511
  2. GEFITINIB. [Suspect]
     Active Substance: GEFITINIB
     Indication: NEOPLASM MALIGNANT
     Route: 048
     Dates: start: 20200603, end: 20200723

REACTIONS (3)
  - Malignant neoplasm progression [Unknown]
  - Tumour thrombosis [Unknown]
  - Liver injury [Unknown]

NARRATIVE: CASE EVENT DATE: 20200608
